FAERS Safety Report 16881406 (Version 3)
Quarter: 2020Q2

REPORT INFORMATION
  Report Type: Spontaneous
  Country: IL (occurrence: IL)
  Receive Date: 20191003
  Receipt Date: 20200520
  Transmission Date: 20200713
  Serious: Yes (Hospitalization, Other)
  Sender: FDA-Public Use
  Company Number: IL-AMGEN-ISRSP2019161940

PATIENT
  Age: 82 Year
  Sex: Female

DRUGS (24)
  1. SOMATULINE [LANREOTIDE] [Concomitant]
     Active Substance: LANREOTIDE
     Dosage: 120 MILLIGRAM, QD
     Route: 058
     Dates: start: 20200504, end: 20200510
  2. PLAVIX [Concomitant]
     Active Substance: CLOPIDOGREL BISULFATE
     Dosage: 75 MILLIGRAM, QD (IN THE MORNING)
     Route: 048
  3. OCSAAR [LOSARTAN] [Concomitant]
     Dosage: 50 MILLIGRAM, QD (IN THE MORNING)
     Route: 048
  4. SOMATOSTATIN [Concomitant]
     Active Substance: SOMATOSTATIN
  5. SODIUM CHLORIDE 0.9% [Concomitant]
     Active Substance: SODIUM CHLORIDE
     Dosage: 1000 CC(ML)
  6. TELEBRIX GASTRO [Concomitant]
     Active Substance: MEGLUMINE IOXITHALAMATE
     Dosage: 30 MILLILITER
     Route: 048
     Dates: start: 20200504
  7. AMLODIPINE [Concomitant]
     Active Substance: AMLODIPINE BESYLATE
     Dosage: 5 MILLIGRAM, QD (IN THE MORNING)
  8. VITAMIN D [ERGOCALCIFEROL] [Concomitant]
     Active Substance: ERGOCALCIFEROL
     Dosage: 400 DROPS 70, QWK (AT EVENING)
  9. CARDILOC [Concomitant]
     Active Substance: BISOPROLOL FUMARATE
     Dosage: 2.5 MILLIGRAM, QD
     Route: 048
  10. NOCTURNO [Concomitant]
     Dosage: 7.5 MILLIGRAM, QD
     Route: 048
  11. PROLIA [Suspect]
     Active Substance: DENOSUMAB
     Indication: PRODUCT USED FOR UNKNOWN INDICATION
     Dosage: UNK
     Route: 065
  12. BISOPROLOL FUMERATE [Concomitant]
     Active Substance: BISOPROLOL FUMARATE
     Dosage: 2.5 MILLIGRAM, QD
  13. FOLIC ACID. [Concomitant]
     Active Substance: FOLIC ACID
     Dosage: 5 MILLIGRAM, QD (EVENING)
  14. PRAMIN [IMIPRAMINE HYDROCHLORIDE] [Concomitant]
     Active Substance: IMIPRAMINE HYDROCHLORIDE
     Dosage: 10 MILLIGRAM/2ML
     Route: 042
     Dates: start: 20200504
  15. TRAMA [Concomitant]
     Dosage: 100 MILLIGRAM/2ML
     Route: 042
     Dates: start: 20200504
  16. CREON [Concomitant]
     Active Substance: PANCRELIPASE AMYLASE\PANCRELIPASE LIPASE\PANCRELIPASE PROTEASE
     Dosage: 25.000 MILLIGRAM, QD (IN THE MORNING)
  17. JARDIANCE [Concomitant]
     Active Substance: EMPAGLIFLOZIN
     Dosage: 10 MILLIGRAM, QD (IN THE MORNING)
  18. LIPITOR [Concomitant]
     Active Substance: ATORVASTATIN CALCIUM
     Dosage: 20 MILLIGRAM, QD (EVENING)
  19. CONTROLOC [Concomitant]
     Active Substance: PANTOPRAZOLE SODIUM
     Dosage: 40 MILLIGRAM, QD
     Route: 048
  20. SOMATULINE [LANREOTIDE] [Concomitant]
     Active Substance: LANREOTIDE
     Indication: NEUROENDOCRINE TUMOUR
     Dosage: 120 MILLIGRAM, Q4WK
     Route: 058
     Dates: start: 20150224
  21. PEN RAFA VK [Concomitant]
     Dosage: 500 MILLIGRAM, QD (IN THE MORNING)
  22. TREGLUDEC [Concomitant]
     Active Substance: INSULIN DEGLUDEC
     Dosage: 16 UNIT, QD (ONCE IN THE MORNING) INJECTION FOR THE ENTIRE NIGHT
  23. ZALDIAR [Concomitant]
     Active Substance: ACETAMINOPHEN\TRAMADOL HYDROCHLORIDE
     Dosage: 37.5 MG / 325 MG
  24. APIDRA SOLOSTAR [Concomitant]
     Active Substance: INSULIN GLULISINE
     Dosage: SEVERAL TIMES A DAY

REACTIONS (24)
  - Haemoglobin abnormal [Unknown]
  - Diverticulum intestinal [Unknown]
  - Syncope [Recovering/Resolving]
  - Traumatic haematoma [Unknown]
  - Ischaemic stroke [Unknown]
  - Musculoskeletal chest pain [Unknown]
  - Bundle branch block left [Not Recovered/Not Resolved]
  - Frequent bowel movements [Unknown]
  - Pain in extremity [Unknown]
  - Abdominal hernia [Unknown]
  - Blood glucose abnormal [Unknown]
  - Blood creatine phosphokinase increased [Unknown]
  - Facial paralysis [Unknown]
  - Fall [Unknown]
  - C-reactive protein increased [Unknown]
  - Spinal osteoarthritis [Unknown]
  - Abdominal pain lower [Unknown]
  - Adrenal mass [Unknown]
  - Vertebral osteophyte [Unknown]
  - Carotid arteriosclerosis [Unknown]
  - Pelvic cyst [Unknown]
  - Umbilical hernia [Unknown]
  - Spinal stenosis [Unknown]
  - Cholelithiasis [Unknown]

NARRATIVE: CASE EVENT DATE: 201909
